FAERS Safety Report 4292369-6 (Version None)
Quarter: 2004Q1

REPORT INFORMATION
  Report Type: 
  Country: None (occurrence: None)
  Receive Date: 20040126
  Receipt Date: 20031008
  Transmission Date: 20041129
  Serious: No
  Sender: FDA-Public Use
  Company Number: USA030843042

PATIENT
  Age: 51 Year
  Sex: Female
  Weight: 71 kg

DRUGS (11)
  1. FORTEO [Suspect]
     Indication: OSTEOPOROSIS
     Dates: start: 20030724
  2. PREDNISONE [Concomitant]
  3. FLOVENT [Concomitant]
  4. SEREVENT [Concomitant]
  5. SINGULAIR [Concomitant]
  6. PREMARIN [Concomitant]
  7. PRAVACHOL [Concomitant]
  8. FOLIC ACID [Concomitant]
  9. ACTONEL [Concomitant]
  10. CALCIUM WITH VITAMIN D [Concomitant]
  11. ALLERGY SHOT [Concomitant]

REACTIONS (7)
  - FEELING ABNORMAL [None]
  - MUSCLE CRAMP [None]
  - NERVOUSNESS [None]
  - PALPITATIONS [None]
  - SLEEP DISORDER [None]
  - TREMOR [None]
  - VIRAL INFECTION [None]
